FAERS Safety Report 15703940 (Version 2)
Quarter: 2019Q1

REPORT INFORMATION
  Report Type: Spontaneous
  Country: US (occurrence: US)
  Receive Date: 20181210
  Receipt Date: 20190102
  Transmission Date: 20190417
  Serious: No
  Sender: FDA-Public Use
  Company Number: US-TARO-2018TAR00849

PATIENT
  Sex: Female

DRUGS (1)
  1. ACYCLOVIR OINTMENT USP 5% [Suspect]
     Active Substance: ACYCLOVIR

REACTIONS (1)
  - Product quality issue [Not Recovered/Not Resolved]
